FAERS Safety Report 8600973-7 (Version None)
Quarter: 2012Q3

REPORT INFORMATION
  Report Type: 
  Country: None (occurrence: None)
  Receive Date: 20120817
  Receipt Date: 20120809
  Transmission Date: 20120928
  Serious: Yes (Other)
  Sender: FDA-Public Use
  Company Number: US-UCBSA-063481

PATIENT
  Age: 79 Year
  Sex: Female
  Weight: 47.6 kg

DRUGS (6)
  1. KEPPRA [Suspect]
     Indication: CONVULSION
  2. RANIBIZUMAB [Suspect]
     Indication: MACULAR DEGENERATION
     Dates: start: 20120101
  3. AFLIBERCEPT [Suspect]
     Indication: MACULAR DEGENERATION
     Dates: start: 20120701
  4. SYNTHROID [Concomitant]
     Indication: THYROIDECTOMY
     Dosage: DOSE :200 MCG
  5. DILANTIN [Suspect]
     Dates: start: 20120723
  6. DILANTIN [Suspect]
     Indication: CONVULSION
     Dates: start: 19700101, end: 20120722

REACTIONS (3)
  - CONVULSION [None]
  - PAIN [None]
  - MACULAR DEGENERATION [None]
